FAERS Safety Report 12839495 (Version 1)
Quarter: 2016Q4

REPORT INFORMATION
  Report Type: Spontaneous
  Country: US (occurrence: US)
  Receive Date: 20161012
  Receipt Date: 20161012
  Transmission Date: 20170207
  Serious: No
  Sender: FDA-Public Use
  Company Number: US-GLAXOSMITHKLINE-US2016147006

PATIENT
  Age: 63 Year
  Sex: Male

DRUGS (1)
  1. NICODERM CQ [Suspect]
     Active Substance: NICOTINE
     Indication: TOBACCO USER
     Dosage: 21 UNK, UNK
     Dates: start: 201609, end: 201609

REACTIONS (3)
  - Intentional product use issue [Unknown]
  - Malaise [Recovered/Resolved]
  - Dizziness [Recovered/Resolved]
